FAERS Safety Report 5391647-7 (Version None)
Quarter: 2007Q3

REPORT INFORMATION
  Report Type: 
  Country: None (occurrence: None)
  Receive Date: 20070719
  Receipt Date: 20070717
  Transmission Date: 20080115
  Serious: Yes (Hospitalization, Other)
  Sender: FDA-Public Use
  Company Number: JP-BOEHRINGER INGELHEIM PHARMACEUTICALS, INC.-2007-BP-17571NB

PATIENT
  Sex: Female
  Weight: 54.5 kg

DRUGS (1)
  1. MICARDIS [Suspect]
     Indication: HYPERTENSION
     Route: 048
     Dates: start: 20060404

REACTIONS (2)
  - CEREBRAL INFARCTION [None]
  - MYOCARDIAL INFARCTION [None]
